FAERS Safety Report 8682522 (Version 3)
Quarter: 2013Q2

REPORT INFORMATION
  Report Type: Report from Study
  Country: BR (occurrence: BR)
  Receive Date: 20120725
  Receipt Date: 20130423
  Transmission Date: 20140414
  Serious: Yes (Other)
  Sender: FDA-Public Use
  Company Number: BR-ROCHE-1090034

PATIENT
  Sex: Female
  Weight: 64 kg

DRUGS (9)
  1. MABTHERA [Suspect]
     Indication: RHEUMATOID ARTHRITIS
     Route: 042
     Dates: start: 20100801, end: 20120628
  2. MABTHERA [Suspect]
     Route: 042
     Dates: start: 20120626
  3. MABTHERA [Suspect]
     Route: 042
     Dates: start: 20120711
  4. PARACETAMOL [Concomitant]
     Indication: PREMEDICATION
     Route: 065
  5. HYDROCORTISONE [Concomitant]
     Indication: PREMEDICATION
     Route: 065
  6. PREDNISONE [Concomitant]
     Route: 065
  7. NIMESULIDE [Concomitant]
     Route: 065
  8. METHOTREXATE [Concomitant]
     Route: 065
  9. FOLIC ACID [Concomitant]

REACTIONS (7)
  - Rash [Recovered/Resolved]
  - Cyanosis [Recovered/Resolved]
  - Throat tightness [Recovered/Resolved]
  - Arthralgia [Recovered/Resolved]
  - Throat irritation [Recovered/Resolved]
  - Local swelling [Recovered/Resolved]
  - Erythema [Recovered/Resolved]
